FAERS Safety Report 5770376-1 (Version None)
Quarter: 2008Q2

REPORT INFORMATION
  Report Type: 
  Country: None (occurrence: None)
  Receive Date: 20080613
  Receipt Date: 20080501
  Transmission Date: 20081010
  Serious: Yes (Other)
  Sender: FDA-Public Use
  Company Number: US-ABBOTT-08P-163-0450040-00

PATIENT
  Sex: Female
  Weight: 63.56 kg

DRUGS (6)
  1. HUMIRA [Suspect]
     Indication: PSORIATIC ARTHROPATHY
     Dosage: 40 MG QOW
     Route: 058
     Dates: start: 20070201, end: 20080417
  2. HUMIRA [Suspect]
     Indication: FIBROMYALGIA
  3. GABAPENTIN [Concomitant]
     Indication: ARTHRITIS
     Dosage: 600 MG DAILY, 200 MG TID
     Dates: start: 20050101
  4. GABAPENTIN [Concomitant]
     Indication: MULTIPLE SCLEROSIS
  5. TRAMADOL HCL [Concomitant]
     Indication: PAIN
     Dosage: TID
     Dates: start: 20030101
  6. METAXALONE [Concomitant]
     Indication: MYALGIA
     Dosage: Q HS
     Dates: start: 20080301

REACTIONS (3)
  - MULTIPLE SCLEROSIS [None]
  - PAIN [None]
  - PARAESTHESIA [None]
